FAERS Safety Report 13020329 (Version 1)
Quarter: 2016Q4

REPORT INFORMATION
  Report Type: Report from Study
  Country: US (occurrence: US)
  Receive Date: 20161212
  Receipt Date: 20161212
  Transmission Date: 20170207
  Serious: Yes (Death, Life-Threatening)
  Sender: FDA-Public Use
  Company Number: US-RECRO GAINESVILLE LLC-REPH-2016-000017

PATIENT

DRUGS (1)
  1. VERAPAMIL HYDROCHLORIDE SUSTAINED RELEASE [Suspect]
     Active Substance: VERAPAMIL HYDROCHLORIDE
     Indication: PRODUCT USED FOR UNKNOWN INDICATION

REACTIONS (7)
  - Nodal arrhythmia [Unknown]
  - Bezoar [Unknown]
  - Intentional overdose [Fatal]
  - Hypotension [Unknown]
  - Intestinal infarction [Unknown]
  - Completed suicide [Fatal]
  - Drug abuse [Unknown]
